FAERS Safety Report 4430266-3 (Version None)
Quarter: 2004Q3

REPORT INFORMATION
  Report Type: 
  Country: None (occurrence: None)
  Receive Date: 20040820
  Receipt Date: 20040810
  Transmission Date: 20050211
  Serious: Yes (Hospitalization)
  Sender: FDA-Public Use
  Company Number: SE-GLAXOSMITHKLINE-B0342290A

PATIENT
  Age: 70 Year
  Sex: Male

DRUGS (5)
  1. SEREVENT [Suspect]
     Indication: BRONCHITIS
     Dosage: 50MCG TWICE PER DAY
     Route: 055
     Dates: start: 20040331, end: 20040401
  2. COZAAR [Concomitant]
     Route: 065
  3. PULMICORT [Concomitant]
     Route: 055
  4. BRICANYL [Concomitant]
     Route: 055
  5. RHINOCORT [Concomitant]
     Route: 055

REACTIONS (5)
  - ANXIETY [None]
  - ARRHYTHMIA [None]
  - ATRIAL FIBRILLATION [None]
  - DIZZINESS [None]
  - HYPERHIDROSIS [None]
